FAERS Safety Report 17898620 (Version 1)
Quarter: 2020Q2

REPORT INFORMATION
  Report Type: Other
  Country: US (occurrence: US)
  Receive Date: 20200616
  Receipt Date: 20200616
  Transmission Date: 20200714
  Serious: Yes (Hospitalization, Other)
  Sender: FDA-Public Use
  Company Number: US-NUVO PHARMACEUTICALS INC-2085896

PATIENT
  Age: 35 Year
  Sex: Male
  Weight: 62 kg

DRUGS (8)
  1. PANTOPRAZOLE [Concomitant]
     Active Substance: PANTOPRAZOLE
     Route: 065
  2. SUMATRIPTAN. [Concomitant]
     Active Substance: SUMATRIPTAN
     Route: 065
  3. GABAPENTIN. [Concomitant]
     Active Substance: GABAPENTIN
     Route: 065
  4. OXYCODONE HYDROCHLORIDE. [Suspect]
     Active Substance: OXYCODONE HYDROCHLORIDE
     Indication: ABDOMINAL PAIN
     Route: 065
  5. MIDAZOLAM. [Concomitant]
     Active Substance: MIDAZOLAM
     Route: 042
  6. PROPOFOL. [Concomitant]
     Active Substance: PROPOFOL
     Route: 042
  7. BLACK SEED OIL (NIGELLA SATIVA) [Suspect]
     Active Substance: DIETARY SUPPLEMENT\HERBALS
     Route: 048
  8. FENTANYL. [Suspect]
     Active Substance: FENTANYL
     Route: 042

REACTIONS (1)
  - Serotonin syndrome [Recovered/Resolved]
